FAERS Safety Report 7651769-4 (Version None)
Quarter: 2011Q3

REPORT INFORMATION
  Report Type: 
  Country: None (occurrence: None)
  Receive Date: 20110802
  Receipt Date: 20110726
  Transmission Date: 20111222
  Serious: Yes (Life-Threatening, Hospitalization)
  Sender: FDA-Public Use
  Company Number: US-RB-027472-11

PATIENT
  Age: 44 Year
  Sex: Female

DRUGS (4)
  1. LAMICTAL [Concomitant]
     Indication: DEPRESSION
     Dosage: DOSING DETAILS UNKNOWN
     Route: 065
  2. SUBOXONE [Suspect]
     Indication: DRUG DEPENDENCE
     Dosage: SUBLINGUAL FILM- 8MG DAILY TAPERED TO 2 MG IN 8 DAYS
     Route: 060
     Dates: start: 20110401, end: 20110501
  3. SUBOXONE [Suspect]
     Indication: DRUG DEPENDENCE
     Dosage: UNKNOWN DOSING DETAILS
     Route: 065
  4. NEURONTIN [Concomitant]
     Indication: PAIN
     Dosage: TAKEN FOR MANY YEARS/ DOSING UNKNOWN
     Route: 065

REACTIONS (6)
  - BACK PAIN [None]
  - SUICIDE ATTEMPT [None]
  - CONDITION AGGRAVATED [None]
  - PAIN IN EXTREMITY [None]
  - UNDERDOSE [None]
  - DEPRESSION [None]
